FAERS Safety Report 11331644 (Version 1)
Quarter: 2015Q3

REPORT INFORMATION
  Report Type: Spontaneous
  Country: IL (occurrence: IL)
  Receive Date: 20150803
  Receipt Date: 20150803
  Transmission Date: 20151125
  Serious: Yes (Other)
  Sender: FDA-Public Use
  Company Number: IL-MYLANLABS-2015M1025730

PATIENT

DRUGS (2)
  1. LITHIUM. [Suspect]
     Active Substance: LITHIUM
     Indication: BIPOLAR DISORDER
     Dosage: 33 TABLETS
     Route: 048
  2. LITHIUM. [Suspect]
     Active Substance: LITHIUM
     Dosage: 55 TABLETS
     Route: 048

REACTIONS (4)
  - Toxicity to various agents [Recovered/Resolved with Sequelae]
  - Intentional overdose [Unknown]
  - Chronic kidney disease [Unknown]
  - Suicide attempt [Unknown]
